FAERS Safety Report 24032517 (Version 1)
Quarter: 2024Q3

REPORT INFORMATION
  Report Type: Spontaneous
  Country: US (occurrence: US)
  Receive Date: 20240701
  Receipt Date: 20240701
  Transmission Date: 20241016
  Serious: Yes (Life-Threatening, Hospitalization)
  Sender: STRIDES
  Company Number: US-STRIDES ARCOLAB LIMITED-2024SP007669

PATIENT
  Age: 60 Year
  Sex: Female

DRUGS (3)
  1. MINOCYCLINE HYDROCHLORIDE [Suspect]
     Active Substance: MINOCYCLINE HYDROCHLORIDE
     Indication: Bacterial infection
     Dosage: UNK
     Route: 065
  2. AZTREONAM [Concomitant]
     Active Substance: AZTREONAM
     Indication: Evidence based treatment
     Dosage: 2 GRAM, TID
     Route: 042
  3. AVIBACTAM SODIUM\CEFTAZIDIME [Concomitant]
     Active Substance: AVIBACTAM SODIUM\CEFTAZIDIME
     Indication: Evidence based treatment
     Dosage: 2.5 GRAM, TID (INFUSION)
     Route: 042

REACTIONS (1)
  - Drug ineffective [Unknown]
